FAERS Safety Report 9856066 (Version 1)
Quarter: 2014Q1

REPORT INFORMATION
  Report Type: Spontaneous
  Country: GB (occurrence: GB)
  Receive Date: 20140130
  Receipt Date: 20140130
  Transmission Date: 20141002
  Serious: Yes (Hospitalization)
  Sender: FDA-Public Use
  Company Number: GB-TEVA-458737ISR

PATIENT
  Age: 55 Year
  Sex: Female

DRUGS (6)
  1. QUININE [Suspect]
     Indication: ACCIDENTAL OVERDOSE
     Dosage: 9 TABLETS
     Route: 065
  2. QUININE [Suspect]
     Indication: MUSCLE SPASMS
     Dosage: 300MG NOCTE
     Route: 065
  3. SALBUTAMOL [Concomitant]
     Dosage: 100MG PRN
     Route: 055
  4. TIOTROPIUM BROMIDE [Concomitant]
     Dosage: 2.5 MILLIGRAM DAILY;
     Route: 055
  5. PREDNISOLONE [Concomitant]
     Indication: CHRONIC OBSTRUCTIVE PULMONARY DISEASE
     Dosage: 45 MILLIGRAM DAILY;
     Route: 065
  6. THIAMINE [Concomitant]
     Dosage: 100 MILLIGRAM DAILY;
     Route: 065

REACTIONS (3)
  - Ocular toxicity [Recovering/Resolving]
  - Accidental overdose [Recovering/Resolving]
  - Wrong drug administered [Recovering/Resolving]
